FAERS Safety Report 19281983 (Version 1)
Quarter: 2021Q2

REPORT INFORMATION
  Report Type: Spontaneous
  Country: IT (occurrence: IT)
  Receive Date: 20210521
  Receipt Date: 20210521
  Transmission Date: 20210717
  Serious: Yes (Hospitalization)
  Sender: FDA-Public Use
  Company Number: IT-TEVA-2021-IT-1912606

PATIENT
  Age: 76 Year
  Sex: Male

DRUGS (8)
  1. COMIRNATY [Suspect]
     Active Substance: TOZINAMERAN
     Indication: COVID-19 IMMUNISATION
     Dosage: 0.3ML
     Route: 030
     Dates: start: 20210412, end: 20210412
  2. FLUOROURACILE TEVA [Suspect]
     Active Substance: FLUOROURACIL
     Dosage: FORM STRENGTH:5 G/100 ML, 3060MG
     Route: 042
     Dates: start: 20210423, end: 20210424
  3. DUOPLAVIN 75 MG/100 MG FILM?COATED TABLETS [Concomitant]
  4. TORVAST 40 MG COMPRESSE MASTICABILI [Concomitant]
  5. BISOPROLOLOAHCL 2,5 MG COMPRESSE RIVESTITE CON FILM [Concomitant]
  6. IRINOTECAN KABI 20 MG/ML CONCENTRATO PER SOLUZIONE PER INFUSIONE [Suspect]
     Active Substance: IRINOTECAN
     Indication: ADENOCARCINOMA OF COLON
     Dosage: 229.5MG
     Route: 042
     Dates: start: 20210423, end: 20210423
  7. FLUOROURACILE TEVA [Suspect]
     Active Substance: FLUOROURACIL
     Indication: ADENOCARCINOMA OF COLON
     Dosage: 510MG, FORM STRENGTH: 1 G/20 ML
     Route: 042
     Dates: start: 20210423, end: 20210423
  8. MVASI [Suspect]
     Active Substance: BEVACIZUMAB-AWWB
     Indication: ADENOCARCINOMA OF COLON
     Dosage: 320MG
     Route: 042
     Dates: start: 20210423, end: 20210423

REACTIONS (2)
  - Asthenia [Recovering/Resolving]
  - Carotid artery occlusion [Recovering/Resolving]

NARRATIVE: CASE EVENT DATE: 20210428
